FAERS Safety Report 4599917-7 (Version None)
Quarter: 2005Q1

REPORT INFORMATION
  Report Type: 
  Country: None (occurrence: None)
  Receive Date: 20050303
  Receipt Date: 20050211
  Transmission Date: 20050727
  Serious: Yes (Death)
  Sender: FDA-Public Use
  Company Number: US_0502112317

PATIENT
  Age: 57 Year
  Sex: Male

DRUGS (2)
  1. DOBUTAMINE HCL [Suspect]
     Indication: STRESS ECHOCARDIOGRAM
     Dosage: 40 UG/KG/MIN OTHER
  2. CONTRAST AGENT [Concomitant]

REACTIONS (6)
  - CARDIO-RESPIRATORY ARREST [None]
  - CHEST PAIN [None]
  - ELECTROCARDIOGRAM ST SEGMENT ELEVATION [None]
  - ELECTROMECHANICAL DISSOCIATION [None]
  - EXTRAVASATION [None]
  - MYOCARDIAL RUPTURE [None]
